FAERS Safety Report 8388606 (Version 3)
Quarter: 2013Q2

REPORT INFORMATION
  Report Type: Spontaneous
  Country: US (occurrence: None)
  Receive Date: 20111221
  Receipt Date: 20121227
  Transmission Date: 20140414
  Serious: Yes (Hospitalization)
  Sender: FDA-Public Use
  Company Number: PHHY2010US57525

PATIENT
  Age: 23 Year
  Sex: Female
  Weight: 68 kg

DRUGS (1)
  1. EXJADE (*CGP 72670*) DISPERSIBLE TABLET, 500MG [Suspect]
     Indication: IRON OVERLOAD
     Dosage: 1500 MG DAILY, ORAL
     Route: 048
     Dates: start: 20100621

REACTIONS (1)
  - SICKLE CELL ANAEMIA WITH CRISIS [None]
